FAERS Safety Report 4789531-2 (Version None)
Quarter: 2005Q4

REPORT INFORMATION
  Report Type: 
  Country: None (occurrence: None)
  Receive Date: 20051005
  Receipt Date: 20051005
  Transmission Date: 20060501
  Serious: Yes (Life-Threatening, Hospitalization)
  Sender: FDA-Public Use
  Company Number: None

PATIENT
  Age: 82 Year
  Sex: Female

DRUGS (6)
  1. ACETAMINOPHEN [Suspect]
     Indication: PAIN
     Dosage: 650 MG PO X 4- 10 DOXS
     Route: 048
  2. ALBUTEROL [Concomitant]
  3. HYDROCHLOROTHIAZIDE [Concomitant]
  4. NITROGLYCERIN [Concomitant]
  5. VERAPAMIL [Concomitant]
  6. POTASSIUM [Concomitant]

REACTIONS (5)
  - ALANINE AMINOTRANSFERASE INCREASED [None]
  - ASPARTATE AMINOTRANSFERASE INCREASED [None]
  - COMMUNICATION DISORDER [None]
  - INTENTIONAL SELF-INJURY [None]
  - OVERDOSE [None]
